FAERS Safety Report 26216582 (Version 1)
Quarter: 2025Q4

REPORT INFORMATION
  Report Type: Spontaneous
  Country: CL (occurrence: CL)
  Receive Date: 20251231
  Receipt Date: 20251231
  Transmission Date: 20260117
  Serious: Yes (Death)
  Sender: ALKEM
  Company Number: CL-ALKEM LABORATORIES LIMITED-CL-ALKEM-2025-14326

PATIENT
  Sex: Male

DRUGS (3)
  1. LINEZOLID [Suspect]
     Active Substance: LINEZOLID
     Indication: Disseminated tuberculosis
     Dosage: 1200 MILLIGRAM, QD (INTERQUARTIL RANGE 0.39-10.2 WEEKS)
     Route: 065
  2. MEROPENEM [Concomitant]
     Active Substance: MEROPENEM
     Indication: Disseminated tuberculosis
     Dosage: 3 GRAM, QD (INTERQUARTIL RANGE 3-6 G/DAY) (INTERQUARTIL RANGE 0.39-4.75 WEEKS)
     Route: 065
  3. LEVOFLOXACIN [Concomitant]
     Active Substance: LEVOFLOXACIN
     Indication: Disseminated tuberculosis
     Dosage: 750 MILLIGRAM, QD (INTERQUARTIL RANGE 0.42-20 WEEKS)
     Route: 065

REACTIONS (1)
  - Anaemia [Fatal]
